FAERS Safety Report 5711715-7 (Version None)
Quarter: 2008Q2

REPORT INFORMATION
  Report Type: 
  Country: None (occurrence: None)
  Receive Date: 20080416
  Receipt Date: 20080319
  Transmission Date: 20081010
  Serious: Yes (Hospitalization)
  Sender: FDA-Public Use
  Company Number: VNL_00974_2008

PATIENT
  Sex: Female

DRUGS (8)
  1. APOMORPHINE HYDROCHLORIDE (APOMORPHINE HYDROCHLORIDE) [Suspect]
     Indication: PARKINSON'S DISEASE
     Dosage: (24 HOURS DAILY FOR UNKNOWN SUBCUTANEOUS
     Route: 058
  2. FENTANYL [Suspect]
     Indication: BACK PAIN
     Route: 062
  3. LEVOTHYROXINE SODIUM [Concomitant]
  4. TIBOLONE [Concomitant]
  5. DOMPERIDONE [Concomitant]
  6. CO-CODAMOL (CO-CODAMOL - CODEINE PHOSPHATE + PARACETAMOL) [Suspect]
     Indication: DRUG USE FOR UNKNOWN INDICATION
     Dosage: (DF)
  7. CELEBREX [Suspect]
     Indication: DRUG USE FOR UNKNOWN INDICATION
     Dosage: (DF)
  8. TRAMADOL HCL [Suspect]
     Indication: DRUG USE FOR UNKNOWN INDICATION
     Dosage: (DF)

REACTIONS (3)
  - OSTEOPOROSIS [None]
  - SKIN DISCOLOURATION [None]
  - STOMACH DISCOMFORT [None]
